FAERS Safety Report 21727584 (Version 1)
Quarter: 2022Q4

REPORT INFORMATION
  Report Type: Spontaneous
  Country: CO (occurrence: CO)
  Receive Date: 20221214
  Receipt Date: 20221214
  Transmission Date: 20230112
  Serious: Yes (Death, Hospitalization, Other)
  Sender: FDA-Public Use
  Company Number: CO-SA-SAC20221212000835

PATIENT
  Sex: Female

DRUGS (1)
  1. PRALUENT [Suspect]
     Active Substance: ALIROCUMAB
     Indication: Ischaemic cardiomyopathy
     Dosage: 75 MG, Q15D
     Route: 058
     Dates: start: 20221102

REACTIONS (3)
  - Myocardial infarction [Fatal]
  - Dyspnoea [Fatal]
  - Chest discomfort [Fatal]

NARRATIVE: CASE EVENT DATE: 20221124
